FAERS Safety Report 11135094 (Version 2)
Quarter: 2015Q2

REPORT INFORMATION
  Report Type: Spontaneous
  Country: JP (occurrence: JP)
  Receive Date: 20150525
  Receipt Date: 20150604
  Transmission Date: 20150821
  Serious: Yes (Death, Other)
  Sender: FDA-Public Use
  Company Number: JP-TEVA-564782ISR

PATIENT
  Age: 64 Year
  Sex: Female

DRUGS (4)
  1. IRINOTECAN [Suspect]
     Active Substance: IRINOTECAN
     Indication: RECTAL CANCER METASTATIC
     Route: 065
     Dates: start: 201310
  2. FOLINIC ACID [Suspect]
     Active Substance: LEUCOVORIN
     Indication: RECTAL CANCER METASTATIC
     Route: 065
     Dates: start: 201310
  3. FLUOROURACIL. [Suspect]
     Active Substance: FLUOROURACIL
     Indication: RECTAL CANCER METASTATIC
     Route: 065
     Dates: start: 201310
  4. BEVACIZUMAB [Suspect]
     Active Substance: BEVACIZUMAB
     Indication: RECTAL CANCER METASTATIC
     Route: 065
     Dates: start: 201310

REACTIONS (7)
  - Respiratory failure [Fatal]
  - Nausea [Recovered/Resolved]
  - Influenza [Fatal]
  - Metastases to lung [Fatal]
  - Vomiting [Recovered/Resolved]
  - Neutropenia [Unknown]
  - Decreased appetite [Recovered/Resolved]
